FAERS Safety Report 15933541 (Version 3)
Quarter: 2020Q4

REPORT INFORMATION
  Report Type: Other
  Country: BR (occurrence: BR)
  Receive Date: 20190207
  Receipt Date: 20201130
  Transmission Date: 20210113
  Serious: Yes (Other)
  Sender: FDA-Public Use
  Company Number: BR-ROCHE-1671809

PATIENT
  Sex: Female
  Weight: 80 kg

DRUGS (13)
  1. ACTEMRA [Suspect]
     Active Substance: TOCILIZUMAB
     Indication: RHEUMATOID ARTHRITIS
     Dosage: LATEST RECEIVED INFUSION: 01/SEP/2020.
     Route: 042
     Dates: start: 20151119
  2. KEFLEX [Concomitant]
     Active Substance: CEPHALEXIN
  3. ATENSINA [Concomitant]
     Active Substance: CLONIDINE
     Indication: HYPERTENSION
  4. ATENSINA [Concomitant]
     Active Substance: CLONIDINE
  5. PANTOPRAZOLE [Concomitant]
     Active Substance: PANTOPRAZOLE
  6. VASOPRIL PLUS [Concomitant]
     Active Substance: ENALAPRIL MALEATE\HYDROCHLOROTHIAZIDE
     Indication: HYPERTENSION
     Dosage: 20/12.5 UNIT NOT REPORTED 9IN THE MORNING AND AFTERNOON)
  7. PURAN [Concomitant]
     Active Substance: LEVOTHYROXINE SODIUM
     Indication: THYROID DISORDER
     Dosage: IN MORNING
  8. METHOTREXATE. [Concomitant]
     Active Substance: METHOTREXATE
     Indication: RHEUMATOID ARTHRITIS
     Dosage: ON TUESADAY
  9. FOLIC ACID. [Concomitant]
     Active Substance: FOLIC ACID
     Indication: RHEUMATOID ARTHRITIS
     Dosage: ON THURSDAY
  10. ASEA HCT [Concomitant]
     Indication: HYPERTENSION
  11. ALDACTONE [Concomitant]
     Active Substance: SPIRONOLACTONE
     Indication: HYPERTENSION
  12. BENICAR [Concomitant]
     Active Substance: OLMESARTAN MEDOXOMIL
     Indication: HYPERTENSION
     Dosage: IN THE MORNING AND AFTERNOON
  13. BRASART HCT [Concomitant]
     Active Substance: HYDROCHLOROTHIAZIDE\VALSARTAN
     Indication: HYPERTENSION

REACTIONS (13)
  - Syncope [Recovered/Resolved]
  - Sciatic nerve neuropathy [Recovered/Resolved]
  - Fibromyalgia [Recovering/Resolving]
  - Cough [Not Recovered/Not Resolved]
  - Ill-defined disorder [Recovered/Resolved]
  - Blood cholesterol increased [Recovering/Resolving]
  - Muscle spasms [Unknown]
  - Gait disturbance [Recovering/Resolving]
  - Arthralgia [Not Recovered/Not Resolved]
  - Hypertension [Recovering/Resolving]
  - Urinary tract infection [Recovered/Resolved]
  - Rheumatoid arthritis [Recovering/Resolving]
  - Anaemia [Recovering/Resolving]
